FAERS Safety Report 13463212 (Version 1)
Quarter: 2017Q2

REPORT INFORMATION
  Report Type: Spontaneous
  Country: DE (occurrence: DE)
  Receive Date: 20170420
  Receipt Date: 20170420
  Transmission Date: 20170830
  Serious: Yes (Death, Hospitalization, Other)
  Sender: FDA-Public Use
  Company Number: DE-AMGEN-DEUSP2017059671

PATIENT
  Age: 67 Year
  Sex: Male

DRUGS (2)
  1. KYPROLIS [Suspect]
     Active Substance: CARFILZOMIB
     Dosage: UNK
     Route: 065
     Dates: start: 20170223, end: 20170224
  2. KYPROLIS [Suspect]
     Active Substance: CARFILZOMIB
     Indication: PLASMACYTOMA
     Dosage: UNK
     Route: 065

REACTIONS (6)
  - Sudden cardiac death [Fatal]
  - Mental status changes [Unknown]
  - Cardiac disorder [Unknown]
  - Influenza [Unknown]
  - Dyspnoea [Unknown]
  - Blood pressure abnormal [Unknown]

NARRATIVE: CASE EVENT DATE: 20170225
